FAERS Safety Report 6070680-6 (Version None)
Quarter: 2009Q1

REPORT INFORMATION
  Report Type: 
  Country: None (occurrence: None)
  Receive Date: 20090209
  Receipt Date: 20090128
  Transmission Date: 20090719
  Serious: Yes (Death, Hospitalization, Other)
  Sender: FDA-Public Use
  Company Number: BE-PFIZER INC-2008098080

PATIENT

DRUGS (6)
  1. SUNITINIB MALATE [Suspect]
     Indication: METASTATIC MALIGNANT MELANOMA
     Dosage: 50 MG, 1X/DAY
     Route: 048
     Dates: start: 20080731, end: 20081009
  2. FLUOXETINE [Concomitant]
     Route: 048
  3. CANRENOL [Concomitant]
     Route: 048
  4. NOVATEC [Concomitant]
     Route: 048
  5. GLUCOPHAGE [Concomitant]
     Route: 048
  6. LASIX [Concomitant]
     Route: 048

REACTIONS (7)
  - DIARRHOEA [None]
  - DYSPNOEA [None]
  - HYPERKALAEMIA [None]
  - PERFORMANCE STATUS DECREASED [None]
  - RENAL FAILURE [None]
  - THROMBOCYTOPENIA [None]
  - URINARY TRACT INFECTION [None]
